FAERS Safety Report 5645533-5 (Version None)
Quarter: 2008Q1

REPORT INFORMATION
  Report Type: 
  Country: None (occurrence: None)
  Receive Date: 20080229
  Receipt Date: 20080220
  Transmission Date: 20080703
  Serious: Yes (Other)
  Sender: FDA-Public Use
  Company Number: US-WYE-H02685508

PATIENT
  Age: 40 Year
  Sex: Female

DRUGS (7)
  1. PHENERGAN HCL [Suspect]
     Indication: TUMOUR PAIN
     Dosage: UNKNOWN
  2. CLONAZEPAM [Concomitant]
     Indication: TUMOUR PAIN
     Dosage: UNKNOWN
     Dates: start: 20070101
  3. CYMBALTA [Concomitant]
     Indication: BIPOLAR DISORDER
     Dates: start: 20060101
  4. QUETIAPINE FUMARATE [Concomitant]
     Indication: TUMOUR PAIN
     Dosage: UNKNOWN
     Dates: start: 20070501
  5. ZYPREXA [Concomitant]
     Indication: BIPOLAR DISORDER
     Dates: start: 20060101
  6. METHADONE HCL [Suspect]
     Indication: TUMOUR PAIN
     Dosage: UNKNOWN
  7. ALPRAZOLAM [Concomitant]
     Indication: TUMOUR PAIN
     Dosage: UNKNOWN
     Dates: start: 20070101

REACTIONS (2)
  - LOSS OF CONSCIOUSNESS [None]
  - SEDATION [None]
